FAERS Safety Report 4272594-0 (Version None)
Quarter: 2004Q1

REPORT INFORMATION
  Report Type: 
  Country: None (occurrence: None)
  Receive Date: 20040114
  Receipt Date: 20040114
  Transmission Date: 20041129
  Serious: Yes (Other)
  Sender: FDA-Public Use
  Company Number: None

PATIENT
  Age: 33 Year
  Sex: Male
  Weight: 108.8633 kg

DRUGS (6)
  1. PAXIL [Suspect]
     Indication: ANXIETY
     Dates: start: 19950610, end: 20040113
  2. PAXIL [Suspect]
     Indication: DEPRESSION
     Dates: start: 19950610, end: 20040113
  3. PAXIL [Suspect]
     Indication: NERVOUSNESS
     Dates: start: 19950610, end: 20040113
  4. PAXIL CR [Suspect]
     Indication: ANXIETY
  5. PAXIL CR [Suspect]
     Indication: DEPRESSION
  6. PAXIL CR [Suspect]
     Indication: NERVOUSNESS

REACTIONS (3)
  - DRUG WITHDRAWAL SYNDROME [None]
  - HYPOAESTHESIA [None]
  - IMPAIRED WORK ABILITY [None]
